FAERS Safety Report 22259138 (Version 4)
Quarter: 2023Q2

REPORT INFORMATION
  Report Type: Report from Study
  Country: TR (occurrence: None)
  Receive Date: 20230427
  Receipt Date: 20230601
  Transmission Date: 20230722
  Serious: Yes (Hospitalization)
  Sender: FDA-Public Use
  Company Number: TR-ROCHE-3333406

PATIENT
  Age: 65 Year
  Sex: Female
  Weight: 74.9 kg

DRUGS (5)
  1. RITUXIMAB [Suspect]
     Active Substance: RITUXIMAB
     Indication: B-cell lymphoma
     Dosage: ON 06/APR/2023, SHE RECEIVED MOST RECENT DOSE OF RITUXIMAB PRIOR AE/SAE 640 MG
     Route: 041
     Dates: start: 20230322
  2. GEMCITABINE [Suspect]
     Active Substance: GEMCITABINE
     Indication: B-cell lymphoma
     Dosage: ON 06/APR/2023, SHE RECEIVED MOST RECENT DOSE OF GEMCITABINE PRIOR AE/SAE IS 1710 MG
     Route: 042
     Dates: start: 20230322
  3. OXALIPLATIN [Suspect]
     Active Substance: OXALIPLATIN
     Indication: B-cell lymphoma
     Dosage: ON 06/APR/2023, SHE RECEIVED MOST RECENT DOSE OF OXALIPLATIN PRIOR AE/SAE 171 MG
     Route: 042
  4. FILGRASTIM [Concomitant]
     Active Substance: FILGRASTIM
     Dates: start: 20230404, end: 20230404
  5. FILGRASTIM [Concomitant]
     Active Substance: FILGRASTIM
     Dates: start: 20230522

REACTIONS (1)
  - Vascular access complication [Recovering/Resolving]

NARRATIVE: CASE EVENT DATE: 20230417
